FAERS Safety Report 16697803 (Version 3)
Quarter: 2020Q1

REPORT INFORMATION
  Report Type: Report from Study
  Country: AU (occurrence: AU)
  Receive Date: 20190813
  Receipt Date: 20200115
  Transmission Date: 20200409
  Serious: Yes (Hospitalization, Other)
  Sender: FDA-Public Use
  Company Number: AU-JNJFOC-20190728440

PATIENT
  Sex: Female

DRUGS (1)
  1. SIMPONI [Suspect]
     Active Substance: GOLIMUMAB
     Indication: RHEUMATOID ARTHRITIS
     Route: 058
     Dates: start: 20190301

REACTIONS (3)
  - Toe amputation [Recovering/Resolving]
  - Contusion [Recovered/Resolved]
  - Hospitalisation [Recovering/Resolving]

NARRATIVE: CASE EVENT DATE: 2019
